FAERS Safety Report 5153900-1 (Version None)
Quarter: 2006Q4

REPORT INFORMATION
  Report Type: 
  Country: None (occurrence: None)
  Receive Date: 20061120
  Receipt Date: 20060126
  Transmission Date: 20070319
  Serious: Yes (Hospitalization)
  Sender: FDA-Public Use
  Company Number: US-AMGEN-US166562

PATIENT
  Sex: Male

DRUGS (6)
  1. PANITUMUMAB [Suspect]
     Indication: COLORECTAL CANCER
     Route: 042
     Dates: start: 20060116
  2. AVASTIN [Suspect]
     Route: 042
  3. OXALIPLATIN [Suspect]
     Route: 042
  4. LEUCOVORIN CALCIUM [Suspect]
     Route: 042
  5. FLUOROURACIL [Suspect]
     Route: 042
  6. VICODIN [Concomitant]
     Route: 048

REACTIONS (3)
  - ABDOMINAL INFECTION [None]
  - ABDOMINAL PAIN [None]
  - LARGE INTESTINE PERFORATION [None]
